FAERS Safety Report 9269416 (Version 2)
Quarter: 2013Q3

REPORT INFORMATION
  Report Type: Spontaneous
  Country: US (occurrence: US)
  Receive Date: 20130503
  Receipt Date: 20130903
  Transmission Date: 20140515
  Serious: Yes (Hospitalization)
  Sender: FDA-Public Use
  Company Number: US-BAYER-2013-052637

PATIENT
  Age: 30 Year
  Sex: Female

DRUGS (4)
  1. YAZ [Suspect]
     Dosage: UNK
     Dates: start: 20061129, end: 20110515
  2. GIANVI [Suspect]
     Dosage: UNK
     Dates: start: 20061129, end: 20110515
  3. ZYRTEC [Concomitant]
  4. MOTRIN [Concomitant]
     Indication: PAIN

REACTIONS (9)
  - Deep vein thrombosis [None]
  - Thrombophlebitis superficial [None]
  - Injury [None]
  - Pain [None]
  - General physical health deterioration [None]
  - Anxiety [None]
  - Emotional distress [None]
  - Anhedonia [None]
  - Pain [None]
